FAERS Safety Report 12435761 (Version 2)
Quarter: 2016Q2

REPORT INFORMATION
  Report Type: Spontaneous
  Country: FR (occurrence: FR)
  Receive Date: 20160603
  Receipt Date: 20160609
  Transmission Date: 20160815
  Serious: Yes (Life-Threatening, Hospitalization)
  Sender: FDA-Public Use
  Company Number: FR-009507513-1606FRA001506

PATIENT
  Age: 36 Year
  Sex: Female

DRUGS (6)
  1. LAMALINE [Concomitant]
     Active Substance: ACETAMINOPHEN\CAFFEINE\OPIUM
  2. NORSET [Suspect]
     Active Substance: MIRTAZAPINE
     Dosage: 24 TABLETS INGESTED I.E 360 MG
  3. TRIMEPRAZINE TARTRATE [Suspect]
     Active Substance: TRIMEPRAZINE TARTRATE
     Dosage: 125 TABLETS INGESTED I.E 760 MG
  4. LIDOCAINE. [Concomitant]
     Active Substance: LIDOCAINE
  5. ZOLPIDEM TARTRATE. [Suspect]
     Active Substance: ZOLPIDEM TARTRATE
     Dosage: 146 TABLETS INGESTED I.E 1460 MG
  6. DIAZEPAM. [Suspect]
     Active Substance: DIAZEPAM
     Dosage: 50 TABLETS INGESTED I.E 500 MG

REACTIONS (7)
  - Mydriasis [Recovered/Resolved]
  - Cardio-respiratory arrest [Recovered/Resolved]
  - Ventricular fibrillation [Recovered/Resolved]
  - Atrioventricular block complete [Recovered/Resolved]
  - Hypotension [Recovered/Resolved]
  - Coma [Recovered/Resolved]
  - Bradycardia [Recovered/Resolved]

NARRATIVE: CASE EVENT DATE: 201604
